FAERS Safety Report 11434026 (Version 1)
Quarter: 2015Q3

REPORT INFORMATION
  Report Type: Spontaneous
  Country: US (occurrence: None)
  Receive Date: 20150828
  Receipt Date: 20150828
  Transmission Date: 20151125
  Serious: Yes (Life-Threatening, Other)
  Sender: FDA-Public Use
  Company Number: None

PATIENT
  Age: 42 Year
  Sex: Male

DRUGS (1)
  1. HUMIRA [Suspect]
     Active Substance: ADALIMUMAB
     Route: 058
     Dates: start: 20150813

REACTIONS (14)
  - Tongue disorder [None]
  - Pain [None]
  - Muscular weakness [None]
  - Rash erythematous [None]
  - Skin exfoliation [None]
  - Erythema [None]
  - Pruritus [None]
  - Oropharyngeal pain [None]
  - Blister [None]
  - Dyspnoea [None]
  - Burning sensation [None]
  - Swelling [None]
  - Sinusitis [None]
  - Swelling face [None]

NARRATIVE: CASE EVENT DATE: 20150813
